FAERS Safety Report 22194449 (Version 2)
Quarter: 2023Q2

REPORT INFORMATION
  Report Type: Spontaneous
  Country: TR (occurrence: TR)
  Receive Date: 20230411
  Receipt Date: 20230617
  Transmission Date: 20230721
  Serious: Yes (Hospitalization, Other)
  Sender: FDA-Public Use
  Company Number: TR-002147023-NVSC2023TR078258

PATIENT

DRUGS (2)
  1. ILARIS [Suspect]
     Active Substance: CANAKINUMAB
     Indication: Rheumatic disorder
     Dosage: UNK, (FOR 3 MONTHS)
     Route: 065
  2. ILARIS [Suspect]
     Active Substance: CANAKINUMAB
     Indication: Inflammation

REACTIONS (7)
  - Hypotension [Unknown]
  - Headache [Unknown]
  - Syncope [Unknown]
  - Heart rate increased [Unknown]
  - Diarrhoea [Unknown]
  - Drug intolerance [Unknown]
  - Off label use [Unknown]
